FAERS Safety Report 11039292 (Version 1)
Quarter: 2015Q2

REPORT INFORMATION
  Report Type: Spontaneous
  Country: US (occurrence: US)
  Receive Date: 20150416
  Receipt Date: 20150416
  Transmission Date: 20150821
  Serious: No
  Sender: FDA-Public Use
  Company Number: US-ASTRAZENECA-2015SE33918

PATIENT
  Sex: Female
  Weight: 89.8 kg

DRUGS (2)
  1. FARXIGA [Suspect]
     Active Substance: DAPAGLIFLOZIN PROPANEDIOL
     Indication: TYPE 2 DIABETES MELLITUS
     Dosage: 30 COUNT BOTTLE, 5 MG UNKNOWN
     Route: 048
     Dates: end: 20150301
  2. FARXIGA [Suspect]
     Active Substance: DAPAGLIFLOZIN PROPANEDIOL
     Indication: TYPE 2 DIABETES MELLITUS
     Dosage: 30 COUNT BOTTLE, 5 MG UNKNOWN
     Route: 048

REACTIONS (2)
  - Influenza like illness [Recovered/Resolved]
  - Vulvovaginal mycotic infection [Recovered/Resolved]
